FAERS Safety Report 20392129 (Version 1)
Quarter: 2022Q1

REPORT INFORMATION
  Report Type: Spontaneous
  Country: SE (occurrence: SE)
  Receive Date: 20220128
  Receipt Date: 20220128
  Transmission Date: 20220423
  Serious: Yes (Other)
  Sender: FDA-Public Use
  Company Number: SE-BoehringerIngelheim-2022-BI-150305

PATIENT
  Age: 73 Year
  Sex: Female

DRUGS (1)
  1. STRIVERDI RESPIMAT [Suspect]
     Active Substance: OLODATEROL HYDROCHLORIDE
     Indication: Chronic obstructive pulmonary disease
     Dates: start: 20220119

REACTIONS (4)
  - Muscle spasms [Unknown]
  - Palpitations [Unknown]
  - Fatigue [Unknown]
  - Dry mouth [Unknown]

NARRATIVE: CASE EVENT DATE: 20220101
